FAERS Safety Report 6582944-8 (Version None)
Quarter: 2010Q1

REPORT INFORMATION
  Report Type: 
  Country: None (occurrence: None)
  Receive Date: 20100216
  Receipt Date: 20100203
  Transmission Date: 20100710
  Serious: Yes (Other)
  Sender: FDA-Public Use
  Company Number: FR-EISAI INC.-E3810-03510-SPO-FR

PATIENT
  Age: 39 Year
  Sex: Female

DRUGS (5)
  1. PARIET (RABEPRAZOLE) [Suspect]
     Indication: HIATUS HERNIA
     Dosage: UNKNOWN
     Route: 048
  2. PARIET (RABEPRAZOLE) [Suspect]
     Dosage: UNKNOWN
     Route: 048
     Dates: end: 20080124
  3. PARIET (RABEPRAZOLE) [Suspect]
     Dosage: UNKNOWN
     Route: 048
  4. PARIET (RABEPRAZOLE) [Suspect]
     Dosage: UNKNOWN
     Route: 048
  5. VASOBRAL [Concomitant]

REACTIONS (35)
  - AGITATION [None]
  - ALOPECIA [None]
  - ANGLE CLOSURE GLAUCOMA [None]
  - ARTHRALGIA [None]
  - ASTHMA [None]
  - BONE PAIN [None]
  - COLITIS COLLAGENOUS [None]
  - DIPLOPIA [None]
  - DRUG HYPERSENSITIVITY [None]
  - DRY MOUTH [None]
  - DYSURIA [None]
  - EXTRASYSTOLES [None]
  - FACE OEDEMA [None]
  - FATIGUE [None]
  - FOOD ALLERGY [None]
  - FUNGAL INFECTION [None]
  - GASTRITIS [None]
  - HAEMATOCHEZIA [None]
  - INTENTIONAL OVERDOSE [None]
  - MORTON'S NEUROMA [None]
  - MULTI-VITAMIN DEFICIENCY [None]
  - MUSCLE SPASMS [None]
  - OEDEMA PERIPHERAL [None]
  - PHARYNGEAL INFLAMMATION [None]
  - POLLAKIURIA [None]
  - PURPURA [None]
  - RAYNAUD'S PHENOMENON [None]
  - RESPIRATORY TRACT INFECTION [None]
  - SCIATICA [None]
  - SKIN REACTION [None]
  - SOMNOLENCE [None]
  - TOOTH DISORDER [None]
  - TUMOUR MARKER INCREASED [None]
  - VOMITING [None]
  - WEIGHT INCREASED [None]
